FAERS Safety Report 8514785-6 (Version None)
Quarter: 2012Q3

REPORT INFORMATION
  Report Type: 
  Country: None (occurrence: None)
  Receive Date: 20120711
  Receipt Date: 20120711
  Transmission Date: 20120928
  Serious: No
  Sender: FDA-Public Use
  Company Number: None

PATIENT
  Age: 24 Year
  Sex: Female
  Weight: 61.2356 kg

DRUGS (1)
  1. ADDERALL 5 [Suspect]

REACTIONS (5)
  - DEPENDENCE [None]
  - PANIC ATTACK [None]
  - KIDNEY INFECTION [None]
  - ANXIETY [None]
  - URINARY TRACT INFECTION [None]
